FAERS Safety Report 23073029 (Version 2)
Quarter: 2023Q4

REPORT INFORMATION
  Report Type: Report from Study
  Country: US (occurrence: US)
  Receive Date: 20231017
  Receipt Date: 20231020
  Transmission Date: 20240110
  Serious: No
  Sender: FDA-Public Use
  Company Number: US-002147023-NVSC2023US221440

PATIENT
  Age: 36 Year
  Sex: Female
  Weight: 72.57 kg

DRUGS (2)
  1. COSENTYX [Suspect]
     Active Substance: SECUKINUMAB
     Indication: Psoriasis
     Dosage: UNK
     Route: 065
  2. COSENTYX [Suspect]
     Active Substance: SECUKINUMAB
     Dosage: 150 MG
     Route: 065
     Dates: start: 202307

REACTIONS (6)
  - Psoriasis [Unknown]
  - Pruritus [Unknown]
  - Skin plaque [Unknown]
  - Skin exfoliation [Unknown]
  - Nodule [Unknown]
  - Product use issue [Unknown]

NARRATIVE: CASE EVENT DATE: 20230701
